FAERS Safety Report 16853899 (Version 1)
Quarter: 2019Q3

REPORT INFORMATION
  Report Type: Spontaneous
  Country: US (occurrence: US)
  Receive Date: 20190926
  Receipt Date: 20190926
  Transmission Date: 20191005
  Serious: No
  Sender: FDA-Public Use
  Company Number: US-JNJFOC-20190920967

PATIENT
  Sex: Female
  Weight: 82.17 kg

DRUGS (5)
  1. NEUTROGENA RAPID WRINKLE REPAIR REGENERATING CREAM [Concomitant]
     Active Substance: COSMETICS
     Indication: SKIN WRINKLING
     Dosage: PEARL SIZED AMOUNT TIP OF MY FINGER ONCE DAILY
     Route: 061
     Dates: start: 2019, end: 20190912
  2. BABY ASPIRIN [Concomitant]
     Active Substance: ASPIRIN
     Indication: HYPERSENSITIVITY
     Route: 065
  3. TYLENOL [Suspect]
     Active Substance: ACETAMINOPHEN
     Indication: HYPERSENSITIVITY
     Dosage: 2 TABLETS ONCE TIME
     Route: 048
  4. CHAPSTICK CLASSIC ORIGINAL [Concomitant]
     Active Substance: PETROLATUM
     Indication: HYPERSENSITIVITY
     Route: 065
  5. PREDNISONE. [Concomitant]
     Active Substance: PREDNISONE
     Indication: PRODUCT USED FOR UNKNOWN INDICATION
     Route: 065

REACTIONS (2)
  - Therapeutic response unexpected [Unknown]
  - Product use in unapproved indication [Unknown]
